FAERS Safety Report 7926914-3 (Version None)
Quarter: 2011Q4

REPORT INFORMATION
  Report Type: 
  Country: None (occurrence: None)
  Receive Date: 20111118
  Receipt Date: 20111110
  Transmission Date: 20120403
  Serious: Yes (Other)
  Sender: FDA-Public Use
  Company Number: US-ELI_LILLY_AND_COMPANY-US201109004025

PATIENT
  Sex: Male
  Weight: 79.819 kg

DRUGS (2)
  1. LANTUS [Concomitant]
     Dosage: UNK
  2. HUMALOG [Suspect]
     Indication: DIABETES MELLITUS
     Dosage: 3 U, TID
     Route: 058
     Dates: start: 20100601

REACTIONS (2)
  - HEADACHE [None]
  - HAEMATOLOGICAL MALIGNANCY [None]
